FAERS Safety Report 8377070-1 (Version None)
Quarter: 2012Q2

REPORT INFORMATION
  Report Type: 
  Country: None (occurrence: None)
  Receive Date: 20120522
  Receipt Date: 20120510
  Transmission Date: 20120825
  Serious: Yes (Hospitalization)
  Sender: FDA-Public Use
  Company Number: CA-ELI_LILLY_AND_COMPANY-CA201205004710

PATIENT
  Sex: Female

DRUGS (13)
  1. TIAZAC [Concomitant]
  2. FOLIC ACID [Concomitant]
  3. METFORMIN HCL [Concomitant]
  4. PREDNISONE TAB [Concomitant]
     Dosage: 5 MG, UNKNOWN
  5. LIPITOR [Concomitant]
  6. VITAMIN B-12 [Concomitant]
  7. VITAMIN D [Concomitant]
  8. INSULIN [Concomitant]
  9. MAGNESIUM [Concomitant]
  10. FORTEO [Suspect]
     Indication: OSTEOPOROSIS
     Dosage: 20 UG, QD
     Route: 058
     Dates: start: 20120405, end: 20120503
  11. METOPROLOL [Concomitant]
  12. FORTEO [Suspect]
     Dosage: 20 UG, QD
     Route: 058
     Dates: start: 20120508
  13. PREDNISONE TAB [Concomitant]
     Dosage: 4 MG, UNKNOWN

REACTIONS (3)
  - DEHYDRATION [None]
  - VOMITING [None]
  - DUODENITIS [None]
